FAERS Safety Report 6462143-0 (Version None)
Quarter: 2009Q4

REPORT INFORMATION
  Report Type: 
  Country: None (occurrence: None)
  Receive Date: 20091124
  Receipt Date: 20091116
  Transmission Date: 20100525
  Serious: Yes (Other)
  Sender: FDA-Public Use
  Company Number: 2009NI0253

PATIENT
  Age: 45 Year
  Sex: Female
  Weight: 68.0396 kg

DRUGS (3)
  1. NITROLINGUAL PUMPSPRAY [Suspect]
     Indication: CHEST PAIN
     Dosage: 1 SPRAY AS NEEDED  PRIOR TO 2004
  2. NITROLINGUAL PUMPSPRAY [Suspect]
     Indication: OESOPHAGEAL SPASM
     Dosage: 1 SPRAY AS NEEDED  PRIOR TO 2004
  3. CLONIDINE 1/2 TABLET OF .1MG [Concomitant]

REACTIONS (5)
  - COUGH [None]
  - DEVICE LEAKAGE [None]
  - DRUG EFFECT DELAYED [None]
  - DYSGEUSIA [None]
  - PRODUCT QUALITY ISSUE [None]
